FAERS Safety Report 4403505-2 (Version None)
Quarter: 2004Q3

REPORT INFORMATION
  Report Type: 
  Country: None (occurrence: None)
  Receive Date: 20040721
  Receipt Date: 20040622
  Transmission Date: 20050211
  Serious: Yes (Death, Life-Threatening, Hospitalization)
  Sender: FDA-Public Use
  Company Number: ES-MERCK-0406ESP00046

PATIENT
  Age: 63 Year
  Sex: Female

DRUGS (4)
  1. [THERAPY UNSPECIFIED] [Concomitant]
     Route: 065
  2. CANCIDAS [Suspect]
     Indication: CANDIDIASIS
     Route: 042
     Dates: start: 20040617, end: 20040617
  3. FLUCONAZOLE [Concomitant]
     Indication: CANDIDIASIS
     Route: 065
  4. VORICONAZOLE [Concomitant]
     Indication: CANDIDIASIS
     Route: 065

REACTIONS (2)
  - ANAPHYLACTIC SHOCK [None]
  - DEATH [None]
